FAERS Safety Report 22288173 (Version 1)
Quarter: 2023Q2

REPORT INFORMATION
  Report Type: Spontaneous
  Country: US (occurrence: None)
  Receive Date: 20230504
  Receipt Date: 20230504
  Transmission Date: 20230722
  Serious: No
  Sender: FDA-Public Use
  Company Number: None

PATIENT
  Sex: Female

DRUGS (1)
  1. BOTOX [Suspect]
     Active Substance: ONABOTULINUMTOXINA
     Dosage: OTHER STRENGTH : 200 UNIT;?OTHER QUANTITY : 155 UNITS;?OTHER FREQUENCY : UNKNOWN;?
     Route: 030
     Dates: start: 202201

REACTIONS (1)
  - Coronary artery bypass [None]
